FAERS Safety Report 7589456-3 (Version None)
Quarter: 2011Q3

REPORT INFORMATION
  Report Type: 
  Country: None (occurrence: None)
  Receive Date: 20110705
  Receipt Date: 20110623
  Transmission Date: 20111222
  Serious: Yes (Hospitalization)
  Sender: FDA-Public Use
  Company Number: US-ROCHE-776006

PATIENT
  Age: 57 Year
  Sex: Female
  Weight: 68 kg

DRUGS (12)
  1. TRAZODONE HCL [Concomitant]
  2. CIPROFLOXACIN HCL [Concomitant]
  3. BLINDED BEVACIZUMAB [Suspect]
     Indication: GLIOBLASTOMA
     Dosage: DOSE:BLINDED, LAST DOSE:07 APRIL 2011 (CYCLE 7, DAY 15)
     Route: 042
     Dates: start: 20100701
  4. TEMOZOLOMIDE [Suspect]
     Indication: GLIOBLASTOMA
     Dosage: CYCLE 7, DAY 6. LAST DOSE PRIOR TO SAE WAS ON 29 MARCH 2011.
     Route: 048
     Dates: start: 20100701
  5. CLONAZEPAM [Concomitant]
  6. ESTRADIOL [Concomitant]
  7. PRILOSEC [Concomitant]
  8. IBUPROFEN [Concomitant]
  9. LIPITOR [Concomitant]
  10. LORAZEPAM [Concomitant]
  11. MICARDIS [Concomitant]
  12. ONDANSETRON [Concomitant]

REACTIONS (1)
  - RENAL FAILURE ACUTE [None]
